FAERS Safety Report 24314619 (Version 4)
Quarter: 2024Q4

REPORT INFORMATION
  Report Type: Spontaneous
  Country: DE (occurrence: DE)
  Receive Date: 20240913
  Receipt Date: 20241007
  Transmission Date: 20250114
  Serious: Yes (Life-Threatening, Hospitalization, Other)
  Sender: ACCORD
  Company Number: DE-Accord-443491

PATIENT
  Age: 72 Year
  Sex: Female

DRUGS (3)
  1. LACOSAMIDE [Interacting]
     Active Substance: LACOSAMIDE
     Indication: Epilepsy
     Dosage: 50 MG P.O. 1-0-1
     Route: 048
     Dates: start: 20230713, end: 20230731
  2. FLECAINIDE [Interacting]
     Active Substance: FLECAINIDE
     Indication: Atrial fibrillation
     Dosage: 100MG 1-0-0 P.O. FROM BEFORE ADMISSION
     Route: 048
  3. TOLVAPTAN [Concomitant]
     Active Substance: TOLVAPTAN
     Indication: Inappropriate antidiuretic hormone secretion
     Dates: start: 2020

REACTIONS (4)
  - Syncope [Recovered/Resolved]
  - Electrocardiogram QRS complex prolonged [Recovered/Resolved]
  - Defect conduction intraventricular [Recovered/Resolved]
  - Drug interaction [Recovered/Resolved]

NARRATIVE: CASE EVENT DATE: 20230731
